FAERS Safety Report 7539261-9 (Version None)
Quarter: 2011Q2

REPORT INFORMATION
  Report Type: 
  Country: None (occurrence: None)
  Receive Date: 20110610
  Receipt Date: 20110601
  Transmission Date: 20111010
  Serious: Yes (Disabling, Other)
  Sender: FDA-Public Use
  Company Number: US-MPIJNJ-2011-01225

PATIENT
  Sex: Female
  Weight: 64.5 kg

DRUGS (5)
  1. REVLIMID [Suspect]
     Dosage: 10 MG, QD
     Route: 048
     Dates: start: 20100921
  2. REVLIMID [Suspect]
     Dosage: 20 UNK, UNK
     Route: 048
     Dates: start: 20101001
  3. DECADRON [Concomitant]
     Indication: MULTIPLE MYELOMA
     Dosage: 4 MG, UNK
     Route: 048
     Dates: start: 20101014
  4. REVLIMID [Suspect]
     Indication: MULTIPLE MYELOMA
     Dosage: 25 MG, UNK
     Route: 048
     Dates: start: 20100611, end: 20100819
  5. VELCADE [Suspect]
     Indication: PRODUCT USED FOR UNKNOWN INDICATION
     Dosage: UNK

REACTIONS (10)
  - PARAESTHESIA [None]
  - PNEUMONIA [None]
  - OEDEMA PERIPHERAL [None]
  - ANAEMIA [None]
  - ATELECTASIS [None]
  - DRUG DOSE OMISSION [None]
  - PAIN IN EXTREMITY [None]
  - FATIGUE [None]
  - MUSCLE FATIGUE [None]
  - DYSPNOEA [None]
